FAERS Safety Report 8548040-5 (Version None)
Quarter: 2012Q3

REPORT INFORMATION
  Report Type: 
  Country: None (occurrence: None)
  Receive Date: 20120730
  Receipt Date: 20120720
  Transmission Date: 20120928
  Serious: Yes (Death, Other)
  Sender: FDA-Public Use
  Company Number: AU-ROCHE-1090932

PATIENT
  Sex: Male

DRUGS (17)
  1. LOSEC (AUSTRALIA) [Concomitant]
     Route: 065
  2. GLICLAZIDE [Concomitant]
     Route: 065
  3. PRAMIPEXOLE DIHYDROCHLORIDE [Concomitant]
     Route: 065
  4. LIPITOR [Concomitant]
     Route: 065
  5. MICARDIS [Concomitant]
     Route: 065
  6. MORPHINE SULFATE [Concomitant]
     Route: 065
  7. ENOXAPARIN SODIUM [Concomitant]
     Route: 065
  8. ISCOVER [Concomitant]
     Route: 065
  9. ONDANSETRON [Concomitant]
     Route: 065
  10. CLOPIDOGREL [Concomitant]
     Route: 065
  11. METALYSE [Suspect]
     Indication: ELECTROCARDIOGRAM ST SEGMENT ELEVATION
  12. NITROGLYCERIN [Concomitant]
     Route: 065
  13. METALYSE [Suspect]
     Indication: THROMBOLYSIS
     Dates: start: 20120704, end: 20120704
  14. CARTIA (AUSTRALIA) [Concomitant]
     Route: 065
  15. ACTONEL [Concomitant]
     Route: 065
  16. MAGMIN [Concomitant]
     Route: 065
  17. ASPIRIN [Concomitant]
     Route: 065

REACTIONS (5)
  - DRUG INEFFECTIVE [None]
  - ACUTE RESPIRATORY DISTRESS SYNDROME [None]
  - ELECTROCARDIOGRAM ST SEGMENT ELEVATION [None]
  - PRODUCT QUALITY ISSUE [None]
  - CARDIOGENIC SHOCK [None]
